FAERS Safety Report 4446749-6 (Version None)
Quarter: 2004Q3

REPORT INFORMATION
  Report Type: 
  Country: None (occurrence: None)
  Receive Date: 20040910
  Receipt Date: 20040826
  Transmission Date: 20050211
  Serious: Yes (Death, Hospitalization)
  Sender: FDA-Public Use
  Company Number: 2004036254

PATIENT
  Age: 94 Year
  Sex: Male

DRUGS (1)
  1. CARDURA [Suspect]
     Indication: BENIGN PROSTATIC HYPERPLASIA
     Dosage: 4 MG (4 MG, 1 IN 1 D), ORAL
     Route: 048
     Dates: start: 20040101

REACTIONS (5)
  - ABDOMINAL PAIN [None]
  - ANOREXIA [None]
  - PULMONARY OEDEMA [None]
  - RESPIRATORY FAILURE [None]
  - URINARY TRACT INFECTION [None]
